FAERS Safety Report 16474062 (Version 1)
Quarter: 2019Q2

REPORT INFORMATION
  Report Type: Spontaneous
  Country: US (occurrence: US)
  Receive Date: 20190625
  Receipt Date: 20190625
  Transmission Date: 20190711
  Serious: Yes (Other)
  Sender: FDA-Public Use
  Company Number: US-SA-2019SA171689

PATIENT
  Age: 67 Year
  Sex: Female
  Weight: 111 kg

DRUGS (2)
  1. OLUMIANT [Concomitant]
     Active Substance: BARICITINIB
  2. KEVZARA [Suspect]
     Active Substance: SARILUMAB
     Indication: RHEUMATOID ARTHRITIS
     Dosage: UNK UNK, QOW
     Dates: start: 20190530

REACTIONS (2)
  - Rheumatoid arthritis [Recovering/Resolving]
  - Pain [Recovering/Resolving]
